FAERS Safety Report 6594023-4 (Version None)
Quarter: 2010Q1

REPORT INFORMATION
  Report Type: 
  Country: None (occurrence: None)
  Receive Date: 20100212
  Receipt Date: 20080630
  Transmission Date: 20100710
  Serious: Yes (Hospitalization)
  Sender: FDA-Public Use
  Company Number: 2008SP013166

PATIENT
  Age: 61 Year
  Sex: Male
  Weight: 45 kg

DRUGS (6)
  1. MOMETASONE FUROATE [Suspect]
     Indication: CHRONIC OBSTRUCTIVE PULMONARY DISEASE
     Dosage: 400 MCG; BID; INH
     Route: 055
     Dates: start: 20080530, end: 20080614
  2. MOMETASONE FUROATE [Suspect]
  3. MOMETASONE FUROATE [Suspect]
  4. MOMETASONE FUROATE [Suspect]
  5. MOMETASONE FUROATE [Suspect]
  6. MOMETASONE FUROATE [Suspect]

REACTIONS (6)
  - BLOOD PH INCREASED [None]
  - BLOOD POTASSIUM DECREASED [None]
  - CARDIAC FAILURE CONGESTIVE [None]
  - HAEMATOCRIT DECREASED [None]
  - HAEMOGLOBIN DECREASED [None]
  - PCO2 DECREASED [None]
